FAERS Safety Report 6671642-8 (Version None)
Quarter: 2010Q2

REPORT INFORMATION
  Report Type: 
  Country: None (occurrence: None)
  Receive Date: 20100407
  Receipt Date: 20100326
  Transmission Date: 20101027
  Serious: No
  Sender: FDA-Public Use
  Company Number: US-B.I. PHARMACEUTICALS,INC./RIDGEFIELD-2010-BP-03580BP

PATIENT
  Sex: Female

DRUGS (2)
  1. ATROVENT HFA [Suspect]
     Indication: EMPHYSEMA
     Route: 055
     Dates: start: 20100201
  2. BISOPROLOL [Concomitant]
     Indication: HEART RATE INCREASED
     Dosage: 0.125 MG
     Route: 048

REACTIONS (7)
  - ASTHENIA [None]
  - DRY SKIN [None]
  - DRY THROAT [None]
  - NERVOUSNESS [None]
  - OEDEMA PERIPHERAL [None]
  - POLLAKIURIA [None]
  - SKIN EXFOLIATION [None]
